FAERS Safety Report 15376064 (Version 6)
Quarter: 2019Q3

REPORT INFORMATION
  Report Type: Spontaneous
  Country: CO (occurrence: CO)
  Receive Date: 20180912
  Receipt Date: 20190716
  Transmission Date: 20191004
  Serious: Yes (Other)
  Sender: FDA-Public Use
  Company Number: CO-ROCHE-2182414

PATIENT
  Age: 68 Year
  Sex: Male
  Weight: 50 kg

DRUGS (4)
  1. XELODA [Suspect]
     Active Substance: CAPECITABINE
     Indication: COLORECTAL CANCER
     Dosage: 1000MG IN THE MORNING AND 1500MG IN THE AFTERNOON
     Route: 048
     Dates: start: 201807
  2. ONDANSETRON [Concomitant]
     Active Substance: ONDANSETRON
  3. XELODA [Suspect]
     Active Substance: CAPECITABINE
     Dosage: 4 TABLETS DAILY.
     Route: 048
  4. AVASTIN [Suspect]
     Active Substance: BEVACIZUMAB
     Indication: COLORECTAL CANCER
     Route: 065
     Dates: start: 201807

REACTIONS (14)
  - Skin exfoliation [Recovering/Resolving]
  - Skin disorder [Recovering/Resolving]
  - Nail disorder [Not Recovered/Not Resolved]
  - Skin discolouration [Recovering/Resolving]
  - Dermal cyst [Not Recovered/Not Resolved]
  - Dry skin [Recovered/Resolved]
  - Onychomadesis [Recovered/Resolved]
  - Gingival pain [Recovering/Resolving]
  - Skin discolouration [Recovered/Resolved]
  - Hyperaesthesia [Recovering/Resolving]
  - Diarrhoea [Recovered/Resolved]
  - Vomiting [Recovered/Resolved]
  - Toxicity to various agents [Recovering/Resolving]
  - Rash [Recovered/Resolved]

NARRATIVE: CASE EVENT DATE: 20180820
